FAERS Safety Report 18822115 (Version 1)
Quarter: 2021Q1

REPORT INFORMATION
  Report Type: Spontaneous
  Country: NL (occurrence: ES)
  Receive Date: 20210202
  Receipt Date: 20210202
  Transmission Date: 20210419
  Serious: Yes (Death, Hospitalization)
  Sender: FDA-Public Use
  Company Number: ES-FRESENIUS KABI-FK202101065

PATIENT
  Age: 70 Year
  Sex: Female
  Weight: 61 kg

DRUGS (6)
  1. OXALIPLATIN (MANUFACTURER UNKNOWN) [Suspect]
     Active Substance: OXALIPLATIN
     Indication: GASTRIC CANCER
     Dosage: 126 MG, CYCLIC (ONCE IN 2 WEEKS)
     Route: 042
     Dates: start: 20200716
  2. FLUOROURACIL. [Suspect]
     Active Substance: FLUOROURACIL
     Indication: GASTRIC CANCER
     Dosage: 3848 MG, CYCLIC (ONCE IN 2 WEEKS)
     Route: 042
     Dates: start: 20200716
  3. FOLINIC ACID [Suspect]
     Active Substance: LEUCOVORIN
     Indication: GASTRIC CANCER
     Dosage: 300 MG, CYCLIC (ONCE IN 2 WEEKS)
     Route: 042
     Dates: start: 20200716
  4. DOCETAXEL. [Suspect]
     Active Substance: DOCETAXEL
     Indication: GASTRIC CANCER
     Dosage: 74 MG, CYCLIC (ONCE IN 2 WEEKS)
     Route: 042
     Dates: start: 20200716
  5. AVELUMAB [Concomitant]
     Active Substance: AVELUMAB
     Indication: GASTRIC CANCER
     Dosage: 590 MG, CYCLIC (ONCE IN 2 WEEKS)
     Route: 042
     Dates: start: 20200827
  6. AVELUMAB [Concomitant]
     Active Substance: AVELUMAB
     Dosage: 590 MG, CYCLIC (ONCE IN 2 WEEKS)
     Route: 042
     Dates: start: 20200716

REACTIONS (1)
  - Hypophagia [Fatal]

NARRATIVE: CASE EVENT DATE: 20200828
